FAERS Safety Report 14236258 (Version 2)
Quarter: 2018Q1

REPORT INFORMATION
  Report Type: Spontaneous
  Country: US (occurrence: US)
  Receive Date: 20171129
  Receipt Date: 20180215
  Transmission Date: 20180508
  Serious: No
  Sender: FDA-Public Use
  Company Number: US-PFIZER INC-2017508690

PATIENT
  Age: 82 Year
  Sex: Male

DRUGS (5)
  1. ATROPINE SULFATE/DIPHENOXYLATE HYDROCHLORIDE [Suspect]
     Active Substance: ATROPINE SULFATE\DIPHENOXYLATE HYDROCHLORIDE
     Dosage: TAKING JUST ONE MORNING AND NIGHT
  2. ATROPINE SULFATE/DIPHENOXYLATE HYDROCHLORIDE [Suspect]
     Active Substance: ATROPINE SULFATE\DIPHENOXYLATE HYDROCHLORIDE
     Dosage: TOOK ONE A DAY/FINALLY JUST STARTED TAKING (DIPHENOXYLATE/ATROPINE) ONCE A DAY
  3. ATROPINE SULFATE/DIPHENOXYLATE HYDROCHLORIDE [Suspect]
     Active Substance: ATROPINE SULFATE\DIPHENOXYLATE HYDROCHLORIDE
     Indication: DIARRHOEA
     Dosage: TOOK 2 IN THE MORNING AND 2 IN THE NIGHT
  4. ATROPINE SULFATE/DIPHENOXYLATE HYDROCHLORIDE [Suspect]
     Active Substance: ATROPINE SULFATE\DIPHENOXYLATE HYDROCHLORIDE
     Dosage: 2 DF, UNK (UPTO 4 TIMES DAILY)
     Dates: start: 20170725, end: 20170726
  5. ESSENTIAL [Concomitant]
     Dosage: UNK

REACTIONS (3)
  - Weight decreased [Recovered/Resolved]
  - Intentional product misuse [Recovered/Resolved]
  - Constipation [Recovered/Resolved]

NARRATIVE: CASE EVENT DATE: 20170725
